FAERS Safety Report 10418805 (Version 1)
Quarter: 2014Q2

REPORT INFORMATION
  Report Type: Spontaneous
  Country: US (occurrence: None)
  Receive Date: 20140617
  Receipt Date: 20140617
  Transmission Date: 20141212
  Serious: Yes (Other)
  Sender: FDA-Public Use
  Company Number: 1306846

PATIENT
  Age: 52 Year
  Sex: Female
  Weight: 90.72 kg

DRUGS (4)
  1. ACTEMRA [Suspect]
     Indication: RHEUMATOID ARTHRITIS
     Route: 042
     Dates: start: 20130108
  2. METHOTREXATE (METHOTREXATE) [Concomitant]
  3. PREDNISONE (PREDNISONE) [Concomitant]
  4. CELEBREX (CELEBREX) [Concomitant]

REACTIONS (1)
  - Ophthalmic herpes zoster [None]
